FAERS Safety Report 11910760 (Version 1)
Quarter: 2016Q1

REPORT INFORMATION
  Report Type: Spontaneous
  Country: US (occurrence: None)
  Receive Date: 20160111
  Receipt Date: 20160111
  Transmission Date: 20160526
  Serious: Yes (Other)
  Sender: FDA-Public Use
  Company Number: None

PATIENT
  Age: 58 Year
  Sex: Female
  Weight: 78.47 kg

DRUGS (10)
  1. LEVOTHYROXYIN [Concomitant]
  2. MALIC ACID [Concomitant]
     Active Substance: MALIC ACID
  3. MAGNESIUM [Concomitant]
     Active Substance: MAGNESIUM
  4. FISH OIL [Concomitant]
     Active Substance: FISH OIL
  5. COCONUT OIL [Concomitant]
     Active Substance: COCONUT OIL
  6. VITAMIN D3 [Concomitant]
     Active Substance: CHOLECALCIFEROL
  7. AQUAPHOR [Suspect]
     Active Substance: PETROLATUM
     Indication: WOUND TREATMENT
     Dates: start: 20151214, end: 20160107
  8. ACTIVELLA [Concomitant]
     Active Substance: ESTRADIOL\NORETHINDRONE ACETATE
  9. CINNAMON. [Concomitant]
     Active Substance: CINNAMON
  10. CRANBERRY. [Concomitant]
     Active Substance: CRANBERRY

REACTIONS (7)
  - Wound complication [None]
  - Oral discomfort [None]
  - Blister [None]
  - Lip swelling [None]
  - Wound secretion [None]
  - Lip pruritus [None]
  - Rash [None]

NARRATIVE: CASE EVENT DATE: 20151221
